FAERS Safety Report 8051962-5 (Version None)
Quarter: 2012Q1

REPORT INFORMATION
  Report Type: 
  Country: None (occurrence: None)
  Receive Date: 20120118
  Receipt Date: 20120108
  Transmission Date: 20120608
  Serious: Yes (Other)
  Sender: FDA-Public Use
  Company Number: DK-VERTEX PHARMACEUTICALS INC.-000000000000000090

PATIENT
  Sex: Female

DRUGS (1)
  1. INCIVO (TELAPREVIR) [Suspect]
     Indication: PRODUCT USED FOR UNKNOWN INDICATION
     Dosage: DOSAGE FORM: TABLET

REACTIONS (2)
  - EOSINOPHILIA [None]
  - RASH [None]
